FAERS Safety Report 14405855 (Version 1)
Quarter: 2018Q1

REPORT INFORMATION
  Report Type: Spontaneous
  Country: FR (occurrence: FR)
  Receive Date: 20180118
  Receipt Date: 20180118
  Transmission Date: 20180509
  Serious: Yes (Other)
  Sender: FDA-Public Use
  Company Number: FR-009507513-1712FRA010510

PATIENT
  Age: 77 Year
  Sex: Female
  Weight: 61.8 kg

DRUGS (4)
  1. VENLAFAXINE HYDROCHLORIDE. [Concomitant]
     Active Substance: VENLAFAXINE HYDROCHLORIDE
     Indication: MAJOR DEPRESSION
     Dosage: 3 DF IN THE MORNING
     Dates: start: 201704
  2. SINEMET [Suspect]
     Active Substance: CARBIDOPA\LEVODOPA
     Dosage: UNK
     Route: 048
     Dates: start: 20171220
  3. SINEMET [Suspect]
     Active Substance: CARBIDOPA\LEVODOPA
     Indication: GAIT DISTURBANCE
     Dosage: GRADUALLY INTRODUCED, CURRENT DOSE 1 TABLET IN THE MORNING, 1/2 TABLET AT NOON, 1/2 TABLET AT NIGHT
     Route: 048
     Dates: start: 20171209, end: 20171219
  4. SERESTA [Concomitant]
     Active Substance: OXAZEPAM
     Indication: MAJOR DEPRESSION
     Dosage: 1/2 DF AT 8:00/12:00/15:00/19:00
     Dates: start: 201704

REACTIONS (4)
  - Major depression [Unknown]
  - Off label use [Unknown]
  - Fatigue [Recovering/Resolving]
  - Nausea [Unknown]

NARRATIVE: CASE EVENT DATE: 201712
